FAERS Safety Report 4501769-8 (Version None)
Quarter: 2004Q4

REPORT INFORMATION
  Report Type: 
  Country: None (occurrence: None)
  Receive Date: 20040928
  Receipt Date: 20040816
  Transmission Date: 20050328
  Serious: No
  Sender: FDA-Public Use
  Company Number: 04P-163-0247613-00

PATIENT
  Age: 59 Year
  Sex: Female
  Weight: 61.2356 kg

DRUGS (8)
  1. HUMIRA [Suspect]
     Indication: RHEUMATOID ARTHRITIS
     Dosage: 40 MG, 1 IN 2 WK, SUBCUTANEOUS
     Route: 058
     Dates: start: 20030601
  2. LEFLUNOMIDE [Concomitant]
  3. QUINAPRIL HYDROCHLORIDE [Concomitant]
  4. AMLODIPINE BESYLATE [Concomitant]
  5. FLURBIPROFEN [Concomitant]
  6. PREDNISONE [Concomitant]
  7. ALENDRONATE SODIUM [Concomitant]
  8. CALCITONIN-SALMON [Concomitant]

REACTIONS (1)
  - INJECTION SITE HAEMORRHAGE [None]
